FAERS Safety Report 12778591 (Version 4)
Quarter: 2016Q4

REPORT INFORMATION
  Report Type: Spontaneous
  Country: CH (occurrence: CH)
  Receive Date: 20160926
  Receipt Date: 20161018
  Transmission Date: 20170207
  Serious: Yes (Hospitalization)
  Sender: FDA-Public Use
  Company Number: IR-CIPLA LTD.-2016CH18682

PATIENT

DRUGS (1)
  1. TOPIRAMATE. [Suspect]
     Active Substance: TOPIRAMATE
     Indication: BIPOLAR DISORDER
     Dosage: 50 MG/DAY
     Route: 065

REACTIONS (6)
  - Blood brain barrier defect [Recovered/Resolved]
  - Vitritis [Recovered/Resolved]
  - Myopia [Recovered/Resolved]
  - Conjunctivitis [Recovered/Resolved]
  - Iris atrophy [Not Recovered/Not Resolved]
  - Angle closure glaucoma [Recovered/Resolved]

NARRATIVE: CASE EVENT DATE: 2004
